FAERS Safety Report 25668666 (Version 1)
Quarter: 2025Q3

REPORT INFORMATION
  Report Type: Report from Study
  Country: US (occurrence: US)
  Receive Date: 20250812
  Receipt Date: 20250812
  Transmission Date: 20251021
  Serious: Yes (Hospitalization)
  Sender: ALEXION PHARMACEUTICALS
  Company Number: US-AstraZeneca-CH-00927062A

PATIENT
  Sex: Male

DRUGS (1)
  1. ACALABRUTINIB [Suspect]
     Active Substance: ACALABRUTINIB
     Indication: Mantle cell lymphoma
     Dosage: 100 MILLIGRAM, BID
     Dates: start: 202505

REACTIONS (4)
  - Chest discomfort [Unknown]
  - Chest pain [Unknown]
  - Bone pain [Unknown]
  - Asthenia [Unknown]
